FAERS Safety Report 5439756-8 (Version None)
Quarter: 2007Q3

REPORT INFORMATION
  Report Type: 
  Country: None (occurrence: None)
  Receive Date: 20070831
  Receipt Date: 20070824
  Transmission Date: 20080115
  Serious: No
  Sender: FDA-Public Use
  Company Number: A0675303A

PATIENT

DRUGS (2)
  1. ALLI [Suspect]
     Indication: DRUG USE FOR UNKNOWN INDICATION
  2. YAZ [Concomitant]

REACTIONS (7)
  - ABDOMINAL DISTENSION [None]
  - AFFECT LABILITY [None]
  - FEELING ABNORMAL [None]
  - MENSTRUATION IRREGULAR [None]
  - PARANOIA [None]
  - PREMENSTRUAL SYNDROME [None]
  - STRESS [None]
